FAERS Safety Report 9897856 (Version 5)
Quarter: 2014Q4

REPORT INFORMATION
  Report Type: Spontaneous
  Country: US (occurrence: US)
  Receive Date: 20140214
  Receipt Date: 20141120
  Transmission Date: 20150529
  Serious: Yes (Other)
  Sender: FDA-Public Use
  Company Number: US-PFIZER INC-2014037285

PATIENT
  Age: 63 Year
  Sex: Female
  Weight: 63 kg

DRUGS (16)
  1. EFFEXOR XR [Suspect]
     Active Substance: VENLAFAXINE HYDROCHLORIDE
     Indication: ANXIETY
     Dosage: 37.5 MG, 1X/DAY
     Route: 048
     Dates: start: 20140130, end: 20140130
  2. EFFEXOR XR [Suspect]
     Active Substance: VENLAFAXINE HYDROCHLORIDE
     Dosage: 12.5 MG, 1X EVERY 64 HOURS
     Dates: start: 201402
  3. VENLAFAXINE [Suspect]
     Active Substance: VENLAFAXINE HYDROCHLORIDE
     Dosage: 12.5 MG, DAILY
     Route: 048
     Dates: start: 2014, end: 2014
  4. VENLAFAXINE [Suspect]
     Active Substance: VENLAFAXINE HYDROCHLORIDE
     Dosage: 12.5MG EVERY 3 DAYS
     Route: 048
     Dates: start: 2014
  5. VENLAFAXINE HCL [Suspect]
     Active Substance: VENLAFAXINE HYDROCHLORIDE
     Indication: ANXIETY
     Dosage: UNK
     Route: 048
     Dates: start: 20140131, end: 20140131
  6. VENLAFAXINE [Suspect]
     Active Substance: VENLAFAXINE HYDROCHLORIDE
     Dosage: 12.5MG EVERY 48 HOURS
     Route: 048
     Dates: start: 2014, end: 2014
  7. VENLAFAXINE [Suspect]
     Active Substance: VENLAFAXINE HYDROCHLORIDE
     Dosage: 12.5MG EVERY 36 HOURS
     Route: 048
     Dates: start: 2014, end: 2014
  8. VENLAFAXINE [Suspect]
     Active Substance: VENLAFAXINE HYDROCHLORIDE
     Dosage: 12.5MG EVERY 48 HOURS
     Route: 048
     Dates: start: 2014, end: 2014
  9. KLONOPIN [Suspect]
     Active Substance: CLONAZEPAM
     Dosage: 0.5 MG, 2X/DAY
     Dates: start: 201402, end: 2014
  10. CLONAZEPAM. [Suspect]
     Active Substance: CLONAZEPAM
     Dosage: 0.25 MG, 1X/DAY AT BED TIME
     Dates: start: 201402
  11. EFFEXOR [Suspect]
     Active Substance: VENLAFAXINE HYDROCHLORIDE
     Indication: ANXIETY
     Dosage: 25 MG, 1X/DAY ( IN THE MORNING)
  12. SYNTHROID [Concomitant]
     Active Substance: LEVOTHYROXINE SODIUM
     Indication: THYROID DISORDER
     Dosage: 88 UG, 1X/DAY
  13. EFFEXOR XR [Suspect]
     Active Substance: VENLAFAXINE HYDROCHLORIDE
     Dosage: NEW VENLAFAXINE 37.5MG IN THE MORNING AND EXPIRED 37.5MG AT NIGHT
     Route: 048
     Dates: start: 20140201, end: 201402
  14. EFFEXOR XR [Suspect]
     Active Substance: VENLAFAXINE HYDROCHLORIDE
     Dosage: 37.5 MG, 2X/DAY
     Route: 048
     Dates: start: 201402
  15. VENLAFAXINE [Suspect]
     Active Substance: VENLAFAXINE HYDROCHLORIDE
     Indication: ANXIETY
     Dosage: 50 MG, DAILY
     Route: 048
     Dates: start: 2014, end: 2014
  16. VENLAFAXINE [Suspect]
     Active Substance: VENLAFAXINE HYDROCHLORIDE
     Dosage: 25 MG, DAILY
     Route: 048
     Dates: start: 2014, end: 2014

REACTIONS (22)
  - Somnolence [Unknown]
  - Feeling abnormal [Not Recovered/Not Resolved]
  - Depression [Not Recovered/Not Resolved]
  - Depressed mood [Not Recovered/Not Resolved]
  - Psychomotor hyperactivity [Unknown]
  - Asthenia [Unknown]
  - Drug withdrawal syndrome [Not Recovered/Not Resolved]
  - Weight decreased [Recovered/Resolved]
  - Drug dependence [Unknown]
  - Burning sensation [Not Recovered/Not Resolved]
  - Palpitations [Not Recovered/Not Resolved]
  - Malaise [Not Recovered/Not Resolved]
  - Crying [Not Recovered/Not Resolved]
  - Drug ineffective [Unknown]
  - Oropharyngeal pain [Recovered/Resolved]
  - Nausea [Not Recovered/Not Resolved]
  - Suicidal ideation [Recovered/Resolved]
  - Anxiety [Not Recovered/Not Resolved]
  - Influenza like illness [Not Recovered/Not Resolved]
  - Insomnia [Unknown]
  - Headache [Recovered/Resolved]
  - Pain [Unknown]

NARRATIVE: CASE EVENT DATE: 2014
